FAERS Safety Report 10543258 (Version 2)
Quarter: 2014Q4

REPORT INFORMATION
  Report Type: Report from Study
  Country: FR (occurrence: FR)
  Receive Date: 20141027
  Receipt Date: 20141027
  Transmission Date: 20150529
  Serious: Yes (Disabling, Other)
  Sender: FDA-Public Use
  Company Number: FR-AMGEN-FRACT2013025841

PATIENT
  Age: 63 Year
  Sex: Male
  Weight: 72.5 kg

DRUGS (19)
  1. XATRAL [Concomitant]
     Active Substance: ALFUZOSIN
     Dosage: 10 MG, UNK
     Route: 048
     Dates: start: 20120912
  2. PRIMPERAN [Concomitant]
     Active Substance: METOCLOPRAMIDE HYDROCHLORIDE
     Dosage: UNK UNK, TID
     Dates: start: 20121017
  3. OTHER COMBINATIONS OF NUTRIENTS [Concomitant]
     Dosage: UNK UNK, TID
     Route: 048
     Dates: start: 20121010
  4. PANITUMUMAB [Suspect]
     Active Substance: PANITUMUMAB
     Indication: GASTROOESOPHAGEAL CANCER
     Dosage: 418 MG, UNK
     Route: 042
     Dates: start: 20120920, end: 20121030
  5. FLUOROURACIL. [Concomitant]
     Active Substance: FLUOROURACIL
     Dosage: 784 MG, UNK
     Dates: start: 20140920
  6. TRACITRANS PLUS [Concomitant]
  7. MORPHINE [Concomitant]
     Active Substance: MORPHINE
     Indication: BACK PAIN
  8. FLUOROURACIL. [Concomitant]
     Active Substance: FLUOROURACIL
     Dosage: 4700 MG, UNK
     Route: 042
     Dates: start: 20120920
  9. ULCAR [Concomitant]
     Active Substance: SUCRALFATE
     Indication: ABDOMINAL PAIN UPPER
     Dosage: 1 G, BID
     Route: 048
     Dates: start: 20120928
  10. I.V. SOLUTIONS [Concomitant]
     Dosage: UNK
     Route: 042
     Dates: start: 201210
  11. PERFALGAN [Concomitant]
     Active Substance: ACETAMINOPHEN
     Dosage: 1 G, TID
     Route: 042
     Dates: start: 20121010
  12. NOVORAPID [Concomitant]
     Active Substance: INSULIN ASPART
     Dosage: 100 IU, UNK
  13. CERNEVIT [Concomitant]
     Active Substance: VITAMINS
  14. FOLINIC ACID [Concomitant]
     Active Substance: LEUCOVORIN
     Indication: GASTROOESOPHAGEAL CANCER
     Dosage: 350 MG, UNK
     Route: 042
     Dates: start: 20120920
  15. FUNGIZON [Concomitant]
     Dosage: UNK UNK, TID
     Route: 048
     Dates: start: 20121010
  16. INSULINE                           /01223401/ [Concomitant]
     Active Substance: INSULIN NOS
     Indication: DIABETES MELLITUS
     Dosage: UNK
     Route: 058
     Dates: start: 20120825
  17. OXALIPLATIN. [Concomitant]
     Active Substance: OXALIPLATIN
     Dosage: 167 MG, UNK
     Route: 042
     Dates: start: 20120920, end: 20121030
  18. INEXIUM [Concomitant]
     Active Substance: ESOMEPRAZOLE
     Dosage: 40 MG, UNK
     Dates: start: 20121010
  19. LOVENOX [Concomitant]
     Active Substance: ENOXAPARIN SODIUM
     Indication: PROPHYLAXIS
     Dosage: 4000 IU, UNK
     Route: 058
     Dates: start: 20120825

REACTIONS (2)
  - Vomiting [Recovered/Resolved]
  - Nausea [Recovered/Resolved]

NARRATIVE: CASE EVENT DATE: 20121019
